FAERS Safety Report 10455428 (Version 1)
Quarter: 2014Q3

REPORT INFORMATION
  Report Type: Spontaneous
  Country: US (occurrence: None)
  Receive Date: 20140915
  Receipt Date: 20140915
  Transmission Date: 20150326
  Serious: No
  Sender: FDA-Public Use
  Company Number: None

PATIENT
  Age: 71 Year
  Sex: Female
  Weight: 90.72 kg

DRUGS (1)
  1. DULCOLAX [Suspect]
     Active Substance: BISACODYL OR DOCUSATE SODIUM
     Indication: CONSTIPATION
     Dosage: ONLY TOOK 2

REACTIONS (4)
  - Gastrointestinal pain [None]
  - Cold sweat [None]
  - Muscle spasms [None]
  - Rectal haemorrhage [None]

NARRATIVE: CASE EVENT DATE: 20140912
